FAERS Safety Report 4870509-5 (Version None)
Quarter: 2005Q4

REPORT INFORMATION
  Report Type: 
  Country: None (occurrence: None)
  Receive Date: 20051228
  Receipt Date: 20051209
  Transmission Date: 20060501
  Serious: Yes (Hospitalization)
  Sender: FDA-Public Use
  Company Number: US200512001743

PATIENT
  Age: 57 Year
  Sex: Male

DRUGS (2)
  1. GEMZAR [Suspect]
     Indication: PANCREATIC CARCINOMA NON-RESECTABLE
     Dosage: OTHER, INTRAVENOUS
     Route: 042
  2. IRINOTECAN HCL [Concomitant]

REACTIONS (9)
  - ASTHENIA [None]
  - CONDITION AGGRAVATED [None]
  - DUODENITIS [None]
  - FATIGUE [None]
  - GASTRITIS [None]
  - HAEMATOCRIT DECREASED [None]
  - ORTHOSTATIC HYPOTENSION [None]
  - RECALL PHENOMENON [None]
  - UPPER GASTROINTESTINAL HAEMORRHAGE [None]
